FAERS Safety Report 9844434 (Version 1)
Quarter: 2014Q1

REPORT INFORMATION
  Report Type: Report from Study
  Country: JP (occurrence: JP)
  Receive Date: 20140127
  Receipt Date: 20140127
  Transmission Date: 20141002
  Serious: Yes (Other)
  Sender: FDA-Public Use
  Company Number: JP-ROCHE-1336266

PATIENT
  Sex: 0

DRUGS (2)
  1. DIAZEPAM [Suspect]
     Indication: SEDATION
     Route: 042
  2. FENTANYL [Suspect]
     Indication: SEDATION
     Route: 042

REACTIONS (5)
  - Pneumothorax [Unknown]
  - Haemorrhage [Unknown]
  - Respiratory depression [Unknown]
  - Bradycardia [Unknown]
  - Blood pressure decreased [Unknown]
